FAERS Safety Report 4981592-0 (Version None)
Quarter: 2006Q2

REPORT INFORMATION
  Report Type: 
  Country: None (occurrence: None)
  Receive Date: 20060425
  Receipt Date: 20060413
  Transmission Date: 20061013
  Serious: Yes (Hospitalization)
  Sender: FDA-Public Use
  Company Number: CH-BRISTOL-MYERS SQUIBB COMPANY-13346028

PATIENT
  Age: 77 Year
  Sex: Female

DRUGS (6)
  1. METHOTREXATE [Suspect]
     Indication: RHEUMATOID ARTHRITIS
  2. ARAVA [Suspect]
     Indication: RHEUMATOID ARTHRITIS
     Route: 048
     Dates: start: 20050616, end: 20050916
  3. MARCUMAR [Concomitant]
     Indication: PULMONARY EMBOLISM
     Dates: start: 20000101
  4. FOSAMAX [Concomitant]
     Indication: OSTEOPOROSIS
     Route: 048
  5. ELTROXIN [Concomitant]
     Indication: HYPOTHYROIDISM
  6. PANTOZOL [Concomitant]
     Route: 048
     Dates: start: 20050912

REACTIONS (5)
  - DIARRHOEA [None]
  - DIZZINESS [None]
  - HALLUCINATION, VISUAL [None]
  - HEADACHE [None]
  - INFECTION [None]
